FAERS Safety Report 10510084 (Version 1)
Quarter: 2014Q4

REPORT INFORMATION
  Report Type: Spontaneous
  Country: US (occurrence: None)
  Receive Date: 20141009
  Receipt Date: 20141009
  Transmission Date: 20150528
  Serious: Yes (Hospitalization)
  Sender: FDA-Public Use
  Company Number: None

PATIENT
  Age: 28 Year
  Sex: Female
  Weight: 99.79 kg

DRUGS (2)
  1. TOPAMAX [Suspect]
     Active Substance: TOPIRAMATE
     Indication: MIGRAINE
     Dosage: 75 MG, 1 PIL , TWICE DAILY  BY MOUTH
     Route: 048
     Dates: start: 201010, end: 201012
  2. WOMEN^S 1 X A DAY VITAMINS [Concomitant]

REACTIONS (14)
  - Skin discolouration [None]
  - Acute kidney injury [None]
  - Urinary retention [None]
  - Gastric disorder [None]
  - Pain [None]
  - Fluid intake reduced [None]
  - Weight decreased [None]
  - Constipation [None]
  - Asthenia [None]
  - Feeding disorder [None]
  - Abdominal pain upper [None]
  - Chromaturia [None]
  - Dysgeusia [None]
  - Amnesia [None]

NARRATIVE: CASE EVENT DATE: 201010
